FAERS Safety Report 5578239-1 (Version None)
Quarter: 2007Q4

REPORT INFORMATION
  Report Type: 
  Country: None (occurrence: None)
  Receive Date: 20071231
  Receipt Date: 20071220
  Transmission Date: 20080405
  Serious: Yes (Death, Other)
  Sender: FDA-Public Use
  Company Number: US-PFIZER INC-2007106768

PATIENT
  Age: 66 Year
  Sex: Male

DRUGS (5)
  1. METHYLPREDNISOLONE 16MG TAB [Suspect]
  2. PROPOFOL [Suspect]
  3. CYCLOSPORINE [Suspect]
  4. COLCHICINE [Suspect]
  5. SIMVASTATIN [Suspect]

REACTIONS (1)
  - MYOPATHY TOXIC [None]
